APPROVED DRUG PRODUCT: RAMIPRIL
Active Ingredient: RAMIPRIL
Strength: 2.5MG
Dosage Form/Route: CAPSULE;ORAL
Application: A091604 | Product #002 | TE Code: AB
Applicant: AUROBINDO PHARMA LTD
Approved: Jun 8, 2011 | RLD: No | RS: No | Type: RX